FAERS Safety Report 20665392 (Version 4)
Quarter: 2022Q2

REPORT INFORMATION
  Report Type: Report from Study
  Country: US (occurrence: US)
  Receive Date: 20220402
  Receipt Date: 20220621
  Transmission Date: 20220720
  Serious: Yes (Hospitalization, Other)
  Sender: FDA-Public Use
  Company Number: USA-CA045-011-0001-2022-CA045-011000004

PATIENT
  Age: 63 Year
  Sex: Female
  Weight: 82 kg

DRUGS (31)
  1. NIVOLUMAB [Suspect]
     Active Substance: NIVOLUMAB
     Indication: Metastatic renal cell carcinoma
     Dosage: THE MOST RECENT ADMINISTRATION OF NIVOLUMAB WAS ON 14-FEB-2022
     Route: 042
     Dates: start: 20210913
  2. INVESTIGATIONAL PRODUCT [Suspect]
     Active Substance: INVESTIGATIONAL PRODUCT
     Indication: Metastatic renal cell carcinoma
     Dosage: 0.006 MG/KG  (0.5 MG) ; IV Q3WK; THE MOST RECENT ADMINISTRATION OF BMS-986321WAS ON 14-FEB-2022
     Route: 042
     Dates: start: 20210913
  3. AXITINIB [Suspect]
     Active Substance: AXITINIB
     Indication: Metastatic renal cell carcinoma
     Dosage: THE MOST RECENT ADMINISTRATION OF AXITINIB WAS ON 07-MAR-2022
     Route: 048
     Dates: start: 20210913
  4. CALCIUM [Concomitant]
     Active Substance: CALCIUM
     Indication: Prophylaxis
     Dosage: DAILY; PER DAY
     Route: 048
     Dates: start: 20210921
  5. MAGNESIUM [Concomitant]
     Active Substance: MAGNESIUM
     Indication: Prophylaxis
     Dosage: DAILY; PER DAY
     Route: 048
     Dates: start: 20210921
  6. SYNTHROID [Concomitant]
     Active Substance: LEVOTHYROXINE SODIUM
     Indication: Product used for unknown indication
     Dosage: DAILY; PER DAY
     Route: 048
     Dates: start: 20220125, end: 20220307
  7. SYNTHROID [Concomitant]
     Active Substance: LEVOTHYROXINE SODIUM
     Dosage: DAILY; PER DAY
     Route: 048
     Dates: start: 20220308
  8. PROMETHAZINE [Concomitant]
     Active Substance: PROMETHAZINE HYDROCHLORIDE
     Indication: Prophylaxis
     Dosage: AS NEEDED
     Route: 048
     Dates: start: 20220114
  9. XARELTO [Concomitant]
     Active Substance: RIVAROXABAN
     Indication: Product used for unknown indication
     Dosage: DAILY; PER DAY
     Route: 048
     Dates: start: 20220113
  10. VITAMIN D2 [Concomitant]
     Active Substance: ERGOCALCIFEROL
     Indication: Prophylaxis
     Dosage: 1 DF= 50000 UNIT NOS?ONE TIME PER WEEK
     Route: 048
     Dates: start: 20190823
  11. ASPIRIN [Concomitant]
     Active Substance: ASPIRIN
     Indication: Prophylaxis
     Dosage: DAILY; PER DAY
     Route: 048
     Dates: start: 2021
  12. TRELEGY ELLIPTA [Concomitant]
     Active Substance: FLUTICASONE FUROATE\UMECLIDINIUM BROMIDE\VILANTEROL TRIFENATATE
     Indication: Product used for unknown indication
     Dosage: 1 DF=100 UNIT NOS?AS NEEDED
     Route: 055
     Dates: start: 2021
  13. GLYCOPYRROLATE [Concomitant]
     Active Substance: GLYCOPYRROLATE
     Indication: Product used for unknown indication
     Dosage: 1 DF=9 UNIT NOS?AS NEEDED
     Route: 055
     Dates: start: 20190903
  14. VITAMINS NOS [Concomitant]
     Active Substance: VITAMINS
     Indication: Prophylaxis
     Dosage: 1 DF= 1 UNIT NOS ?DAILY; PER DAY
     Route: 048
     Dates: start: 20210921
  15. TYLENOL [Concomitant]
     Active Substance: ACETAMINOPHEN
     Indication: Prophylaxis
     Dosage: 1DF= 1 UNIT NOS AS NEEDED
     Route: 048
     Dates: start: 20210921
  16. IPRATROPIUM BROMIDE AND ALBUTEROL SULFATE NEBULIZER TREATMENT [Concomitant]
     Indication: Product used for unknown indication
     Dosage: AS NEEDED
     Route: 055
     Dates: start: 20210916
  17. AZELASTINE [Concomitant]
     Active Substance: AZELASTINE
     Indication: Product used for unknown indication
     Dosage: 1 DF= 132 UNIT NOS?BD; TWICE PER DAY
     Route: 045
     Dates: start: 20210801
  18. PROCHLORPERAZINE (COMPAZINE) [Concomitant]
     Indication: Product used for unknown indication
     Dosage: AS NEEDED
     Route: 048
     Dates: start: 20210927
  19. METOPROLOL XL (TOPROL-XL) [Concomitant]
     Indication: Product used for unknown indication
     Dosage: DAILY; PER DAY
     Route: 048
     Dates: start: 20211019
  20. TRIAMCINOLONE [Concomitant]
     Active Substance: TRIAMCINOLONE
     Indication: Product used for unknown indication
     Dosage: 1 DF= 0.1 UNIT NOS?BD; TWICE PER DAY
     Route: 061
     Dates: start: 20211129
  21. ZOLOFT [Concomitant]
     Active Substance: SERTRALINE HYDROCHLORIDE
     Indication: Product used for unknown indication
     Dosage: BD; TWICE PER DAY
     Route: 048
     Dates: start: 20220114
  22. FLUTICASONE [Concomitant]
     Active Substance: FLUTICASONE
     Indication: Prophylaxis
     Dosage: 1 DF= 50 UNIT NOS?BD; TWICE PER DAY
     Route: 045
     Dates: start: 20190903
  23. XANAX [Concomitant]
     Active Substance: ALPRAZOLAM
     Indication: Product used for unknown indication
     Dosage: DAILY; PER DAY
     Route: 048
     Dates: start: 20220114
  24. CETIRIZINE(ZYRTEC) [Concomitant]
     Indication: Prophylaxis
     Dosage: AS NEEDED
     Route: 048
     Dates: start: 2021
  25. COLACE [Concomitant]
     Active Substance: DOCUSATE SODIUM
     Indication: Prophylaxis
     Dosage: AS NEEDED
     Route: 048
     Dates: start: 202109
  26. SENNOSIDES (SENOKOT) [Concomitant]
     Indication: Prophylaxis
     Dosage: AS NEEDED
     Route: 048
     Dates: start: 202109
  27. FEXOFENIDINE(ALLEGRA) [Concomitant]
     Indication: Product used for unknown indication
     Dosage: AS NEEDED
     Route: 048
     Dates: start: 2021
  28. AMPLODIPINE [Concomitant]
     Indication: Prophylaxis
     Route: 048
     Dates: start: 20210927
  29. PFIZER-BIONTECH COVID-19 VACCINE [Concomitant]
     Active Substance: TOZINAMERAN
     Indication: Prophylaxis
     Dosage: UNK
     Route: 030
     Dates: start: 20210405
  30. PFIZER-BIONTECH COVID-19 VACCINE [Concomitant]
     Active Substance: TOZINAMERAN
     Route: 030
     Dates: start: 20210427
  31. FLU VACCINE MDCK  QUAD PF 2Y+ IM -  FLUCELVAX [Concomitant]
     Indication: Prophylaxis
     Route: 030
     Dates: start: 20211004

REACTIONS (3)
  - Decreased appetite [Not Recovered/Not Resolved]
  - Neck pain [Not Recovered/Not Resolved]
  - Haematochezia [Recovered/Resolved]

NARRATIVE: CASE EVENT DATE: 20220225
